FAERS Safety Report 24116883 (Version 1)
Quarter: 2024Q3

REPORT INFORMATION
  Report Type: Report from Study
  Country: US (occurrence: US)
  Receive Date: 20240722
  Receipt Date: 20240722
  Transmission Date: 20241017
  Serious: No
  Sender: ROCHE
  Company Number: US-ROCHE-10000029762

PATIENT
  Age: 51 Year
  Sex: Female
  Weight: 60.33 kg

DRUGS (7)
  1. OCREVUS [Suspect]
     Active Substance: OCRELIZUMAB
     Indication: Multiple sclerosis
     Dosage: MORE DOSAGE INFORMATION IS 300 MG SINGLE-USE VIAL
     Route: 065
     Dates: end: 20221018
  2. ACETAMINOPHEN [Concomitant]
     Active Substance: ACETAMINOPHEN
  3. BACLOFEN [Concomitant]
     Active Substance: BACLOFEN
  4. MELOXICAM [Concomitant]
     Active Substance: MELOXICAM
  5. METHYLPREDNISOLONE SODIUM SUCCINATE [Concomitant]
     Active Substance: METHYLPREDNISOLONE SODIUM SUCCINATE
  6. SERTRALINE [Concomitant]
     Active Substance: SERTRALINE HYDROCHLORIDE
  7. SOLIFENACIN [Concomitant]
     Active Substance: SOLIFENACIN

REACTIONS (8)
  - Arthritis [Unknown]
  - Bladder disorder [Unknown]
  - Contusion [Unknown]
  - Varicella [Unknown]
  - Nocturia [Unknown]
  - Stress [Unknown]
  - Depression [Unknown]
  - Back pain [Unknown]
